FAERS Safety Report 9249462 (Version 1)
Quarter: 2013Q2

REPORT INFORMATION
  Report Type: Spontaneous
  Country: FR (occurrence: FR)
  Receive Date: 20130423
  Receipt Date: 20130423
  Transmission Date: 20140414
  Serious: No
  Sender: FDA-Public Use
  Company Number: FR-JNJFOC-20130408249

PATIENT
  Age: 83 Year
  Sex: Male

DRUGS (2)
  1. DUROGESIC [Suspect]
     Indication: RIB FRACTURE
     Route: 062
     Dates: start: 201304, end: 201304
  2. DUROGESIC [Suspect]
     Indication: RIB FRACTURE
     Route: 062
     Dates: start: 201304

REACTIONS (3)
  - Somnolence [Recovered/Resolved]
  - Wrong technique in drug usage process [Recovered/Resolved]
  - Off label use [Unknown]
